FAERS Safety Report 14193792 (Version 2)
Quarter: 2018Q1

REPORT INFORMATION
  Report Type: Spontaneous
  Country: US (occurrence: US)
  Receive Date: 20171115
  Receipt Date: 20180131
  Transmission Date: 20180508
  Serious: Yes (Hospitalization)
  Sender: FDA-Public Use
  Company Number: US-BIOGEN-2010BI000698

PATIENT
  Age: 45 Year
  Sex: Female

DRUGS (3)
  1. AVONEX [Suspect]
     Active Substance: INTERFERON BETA-1A
     Indication: MULTIPLE SCLEROSIS
     Route: 065
     Dates: start: 19990601
  2. AVONEX [Suspect]
     Active Substance: INTERFERON BETA-1A
     Route: 030
     Dates: start: 200308, end: 20091118
  3. AVONEX [Suspect]
     Active Substance: INTERFERON BETA-1A
     Route: 030
     Dates: end: 201305

REACTIONS (4)
  - Intracranial aneurysm [Recovered/Resolved]
  - Myocardial infarction [Recovered/Resolved]
  - Swelling face [Recovered/Resolved]
  - Eyelid function disorder [Recovered/Resolved]

NARRATIVE: CASE EVENT DATE: 200709
